FAERS Safety Report 8342216-8 (Version None)
Quarter: 2012Q2

REPORT INFORMATION
  Report Type: 
  Country: None (occurrence: None)
  Receive Date: 20120507
  Receipt Date: 20120424
  Transmission Date: 20120825
  Serious: Yes (Life-Threatening)
  Sender: FDA-Public Use
  Company Number: DE-AMGEN-DEUSP2012026332

PATIENT
  Age: 76 Year
  Sex: Male
  Weight: 71.973 kg

DRUGS (3)
  1. ENBREL [Suspect]
     Indication: RHEUMATOID ARTHRITIS
     Dosage: 25 MG, 2X/WEEK
     Route: 058
     Dates: start: 20030320, end: 20090611
  2. PREDNISOLONE [Concomitant]
     Indication: RHEUMATOID ARTHRITIS
     Dosage: 5-10 MG, UNK
     Route: 048
     Dates: start: 19931201
  3. ENBREL [Suspect]
     Dosage: 25 MG, 2X/DAY
     Route: 058
     Dates: start: 20090817, end: 20110919

REACTIONS (2)
  - METASTATIC BRONCHIAL CARCINOMA [None]
  - SQUAMOUS CELL CARCINOMA [None]
